FAERS Safety Report 15067647 (Version 1)
Quarter: 2018Q2

REPORT INFORMATION
  Report Type: Spontaneous
  Country: FR (occurrence: FR)
  Receive Date: 20180626
  Receipt Date: 20180626
  Transmission Date: 20180711
  Serious: Yes (Congenital Anomaly, Other)
  Sender: FDA-Public Use
  Company Number: FR-SA-2018SA164175

PATIENT
  Sex: Male
  Weight: 3.98 kg

DRUGS (2)
  1. QUESTRAN [Suspect]
     Active Substance: CHOLESTYRAMINE
     Indication: MULTIPLE SCLEROSIS
     Dosage: 2 DF, TOTAL
     Route: 064
     Dates: start: 20160213, end: 20160213
  2. AUBAGIO [Suspect]
     Active Substance: TERIFLUNOMIDE
     Indication: MULTIPLE SCLEROSIS
     Dosage: 1 DF, QD
     Route: 064
     Dates: start: 20151201, end: 20160107

REACTIONS (2)
  - Pyelocaliectasis [Not Recovered/Not Resolved]
  - Cryptorchism [Recovered/Resolved with Sequelae]

NARRATIVE: CASE EVENT DATE: 201607
